FAERS Safety Report 5366708-9 (Version None)
Quarter: 2007Q2

REPORT INFORMATION
  Report Type: 
  Country: None (occurrence: None)
  Receive Date: 20070622
  Receipt Date: 20051005
  Transmission Date: 20071010
  Serious: No
  Sender: FDA-Public Use
  Company Number: US-ASTRAZENECA-2005UW08092

PATIENT
  Age: 53 Year
  Sex: Female
  Weight: 59 kg

DRUGS (8)
  1. RHINOCORT [Suspect]
     Indication: SEASONAL ALLERGY
     Route: 045
     Dates: start: 20050520
  2. RHINOCORT [Suspect]
     Route: 045
  3. TARKA [Suspect]
     Dates: start: 20050520, end: 20050524
  4. DIOVAN HCT [Concomitant]
     Dates: start: 20050525
  5. ALLEGRA [Concomitant]
  6. CALCIUM CHLORIDE [Concomitant]
  7. BIOTIN [Concomitant]
  8. ASCORBIC ACID [Concomitant]

REACTIONS (4)
  - DIZZINESS [None]
  - EPISTAXIS [None]
  - LACRIMATION INCREASED [None]
  - THROAT IRRITATION [None]
